FAERS Safety Report 7266081-5 (Version None)
Quarter: 2011Q1

REPORT INFORMATION
  Report Type: 
  Country: None (occurrence: None)
  Receive Date: 20110131
  Receipt Date: 20100603
  Transmission Date: 20110831
  Serious: No
  Sender: FDA-Public Use
  Company Number: US-ABBOTT-10P-163-0649698-00

PATIENT
  Sex: Male

DRUGS (3)
  1. CADEX [Concomitant]
     Indication: PROSTATE CANCER
     Route: 048
  2. RADIATION THERAPY [Concomitant]
     Indication: PROSTATE CANCER
  3. LUPRON DEPOT [Suspect]
     Indication: PROSTATE CANCER
     Route: 050
     Dates: start: 20100301

REACTIONS (1)
  - HOT FLUSH [None]
